FAERS Safety Report 23511835 (Version 5)
Quarter: 2024Q2

REPORT INFORMATION
  Report Type: Report from Study
  Country: US (occurrence: US)
  Receive Date: 20240212
  Receipt Date: 20240628
  Transmission Date: 20240715
  Serious: Yes (Other)
  Sender: FDA-Public Use
  Company Number: US-002147023-NVSC2024US029616

PATIENT
  Sex: Female

DRUGS (1)
  1. KESIMPTA [Suspect]
     Active Substance: OFATUMUMAB
     Indication: Relapsing multiple sclerosis
     Dosage: UNK
     Route: 065

REACTIONS (8)
  - Coeliac disease [Unknown]
  - Diabetes mellitus inadequate control [Unknown]
  - Multiple sclerosis relapse [Unknown]
  - Optic neuritis [Unknown]
  - Muscle spasms [Unknown]
  - Memory impairment [Not Recovered/Not Resolved]
  - Gastrointestinal disorder [Unknown]
  - Hypotension [Unknown]
